FAERS Safety Report 7030977-X (Version None)
Quarter: 2010Q4

REPORT INFORMATION
  Report Type: 
  Country: None (occurrence: None)
  Receive Date: 20101006
  Receipt Date: 20100126
  Transmission Date: 20110411
  Serious: No
  Sender: FDA-Public Use
  Company Number: US-BRISTOL-MYERS SQUIBB COMPANY-14952097

PATIENT
  Age: 3 Year
  Sex: Male

DRUGS (1)
  1. KENALOG-40 [Suspect]
     Route: 030

REACTIONS (2)
  - DEVELOPMENTAL DELAY [None]
  - INJECTION SITE ATROPHY [None]
